FAERS Safety Report 7287332-7 (Version None)
Quarter: 2011Q1

REPORT INFORMATION
  Report Type: 
  Country: None (occurrence: None)
  Receive Date: 20110211
  Receipt Date: 20110131
  Transmission Date: 20110831
  Serious: Yes (Life-Threatening)
  Sender: FDA-Public Use
  Company Number: RO-JNJFOC-20110200933

PATIENT
  Sex: Female

DRUGS (4)
  1. REMICADE [Suspect]
     Route: 042
  2. DICLOFENAC SODIUM [Concomitant]
     Route: 048
  3. REMICADE [Suspect]
     Indication: RHEUMATOID ARTHRITIS
     Route: 042
  4. METHOTREXATE [Concomitant]
     Route: 030

REACTIONS (6)
  - HYPERTENSION [None]
  - SINUS BRADYCARDIA [None]
  - HYPOTENSION [None]
  - INFUSION RELATED REACTION [None]
  - ABDOMINAL PAIN UPPER [None]
  - CYANOSIS [None]
